FAERS Safety Report 5862816-4 (Version None)
Quarter: 2008Q3

REPORT INFORMATION
  Report Type: 
  Country: None (occurrence: None)
  Receive Date: 20080827
  Receipt Date: 20080825
  Transmission Date: 20090109
  Serious: No
  Sender: FDA-Public Use
  Company Number: APP200800764

PATIENT
  Age: 81 Year
  Sex: Female
  Weight: 58.0604 kg

DRUGS (2)
  1. HEPARIN SODIUM INJECTION [Suspect]
     Indication: THROMBOSIS PROPHYLAXIS
     Dosage: 5000 USP UNITS, 1 IN 12 HR, SUBCUTANEOUS
     Route: 058
     Dates: start: 20080125, end: 20080205
  2. LIPITOR [Concomitant]

REACTIONS (4)
  - ASTHMA [None]
  - COUGH [None]
  - PNEUMONIA [None]
  - RHINORRHOEA [None]
